FAERS Safety Report 12565028 (Version 1)
Quarter: 2016Q3

REPORT INFORMATION
  Report Type: Spontaneous
  Country: US (occurrence: US)
  Receive Date: 20160718
  Receipt Date: 20160718
  Transmission Date: 20161109
  Serious: No
  Sender: FDA-Public Use
  Company Number: US-BAYER-2016-139558

PATIENT
  Age: 70 Year
  Sex: Female
  Weight: 53.61 kg

DRUGS (2)
  1. CLARITIN-D 12 HOUR [Suspect]
     Active Substance: LORATADINE\PSEUDOEPHEDRINE SULFATE
     Indication: PERENNIAL ALLERGY
     Dosage: 1 DF, QD
     Route: 048
     Dates: start: 20160709
  2. BAYER LOW DOSE [Concomitant]
     Active Substance: ASPIRIN
     Dosage: UNK UNK, PRN

REACTIONS (1)
  - Poor quality sleep [None]

NARRATIVE: CASE EVENT DATE: 20160710
